FAERS Safety Report 8833091 (Version 2)
Quarter: 2012Q4

REPORT INFORMATION
  Report Type: 
  Country: BR (occurrence: BR)
  Receive Date: 20121010
  Receipt Date: 20121218
  Transmission Date: 20130627
  Serious: Yes (Other)
  Sender: FDA-Public Use
  Company Number: BR-PFIZER INC-2012250232

PATIENT
  Age: 77 Year
  Sex: Female
  Weight: 102 kg

DRUGS (3)
  1. LYRICA [Suspect]
     Indication: FIBROMYALGIA
     Dosage: 225 mg (3 capsules) daily
     Route: 048
     Dates: start: 2009
  2. DIOSMIN [Concomitant]
     Indication: DISORDER CIRCULATORY SYSTEM
     Dosage: 100 mg daily
     Dates: start: 2011
  3. CYMBALTA [Concomitant]
     Indication: FIBROMYALGIA
     Dosage: 210 mg daily
     Dates: start: 2010

REACTIONS (3)
  - Spinal disorder [Unknown]
  - Pain [Unknown]
  - Drug ineffective [Recovering/Resolving]
